FAERS Safety Report 11076589 (Version 1)
Quarter: 2015Q2

REPORT INFORMATION
  Report Type: Spontaneous
  Country: US (occurrence: US)
  Receive Date: 20150429
  Receipt Date: 20150429
  Transmission Date: 20150821
  Serious: No
  Sender: FDA-Public Use
  Company Number: US-PFIZER INC-2015141176

PATIENT
  Age: 39 Year
  Sex: Female

DRUGS (19)
  1. LYRICA [Suspect]
     Active Substance: PREGABALIN
     Indication: LIMB DISCOMFORT
  2. ROBAXIN [Concomitant]
     Active Substance: METHOCARBAMOL
     Dosage: 500 MG, 1X/DAY (500 MG TWO TABLETS AT BED TIME)
     Dates: start: 20150325
  3. ZANAFLEX [Concomitant]
     Active Substance: TIZANIDINE HYDROCHLORIDE
     Dosage: 2 MG, (1 CAPSULE EVERY EIGHT HOURS AS NEEDED)
     Dates: start: 20150323
  4. LECITHIN [Concomitant]
     Active Substance: LECITHIN
     Dosage: 400 MG, DAILY
     Route: 048
  5. NAPROXEN. [Concomitant]
     Active Substance: NAPROXEN
     Indication: PAIN
     Dosage: 375 MG, (1 TABLET EVERY 12 HOURS AS NEEDED)
     Dates: start: 20150323
  6. OXYCODONE HCL [Concomitant]
     Active Substance: OXYCODONE HYDROCHLORIDE
     Dosage: UNK
  7. ALOE VERA [Concomitant]
     Active Substance: ALOE VERA LEAF
     Dosage: 1 DF, DAILY
     Route: 048
  8. NONI [Concomitant]
     Dosage: 1 DF, DAILY
     Route: 048
  9. VALERIAN [Concomitant]
     Active Substance: VALERIAN
     Dosage: 400 MG, 1X/DAY
     Route: 048
  10. OXYCODONE HCL [Concomitant]
     Active Substance: OXYCODONE HYDROCHLORIDE
     Indication: PAIN
     Dosage: 5 MG, AS NEEDED (1 TABLET Q 6H PRN, CAN TAKE 2-3 TABS Q 6H PRN ^(3X/DAY)^)
     Dates: start: 20150323
  11. DIAZEPAM. [Concomitant]
     Active Substance: DIAZEPAM
     Indication: MUSCLE SPASMS
     Dosage: 5 MG, 1/2 TO 1 TABLET EVERY 8 HOURS AS NEEDED
     Dates: start: 20150324
  12. FISH OIL [Concomitant]
     Active Substance: FISH OIL
     Dosage: 1200 MG, DAILY
     Route: 048
  13. L-LYSINE [Concomitant]
     Active Substance: LYSINE
     Dosage: 500 MG, DAILY
  14. LYRICA [Suspect]
     Active Substance: PREGABALIN
     Indication: COMPLEX REGIONAL PAIN SYNDROME
     Dosage: 75 MG, 3X/DAY
     Dates: start: 20150406
  15. MIRALAX [Concomitant]
     Active Substance: POLYETHYLENE GLYCOL 3350
     Dosage: 17 G, DAILY (1 (ONE) POWDER 17 GRAMS POWDER ONCE DAILY WITH LIQUID)
     Dates: start: 20150415
  16. SAVELLA [Concomitant]
     Active Substance: MILNACIPRAN HYDROCHLORIDE
     Dosage: 50 MG, 2X/DAY
     Dates: start: 20150323
  17. POTASSIUM GLUCONATE [Concomitant]
     Active Substance: POTASSIUM GLUCONATE
     Dosage: 595 MG, DAILY
     Route: 048
  18. IMPLANON [Concomitant]
     Active Substance: ETONOGESTREL
     Dosage: 68 MG, UNK
     Route: 058
  19. GINGER ROOT [Concomitant]
     Dosage: 550 MG, DAILY
     Route: 048

REACTIONS (2)
  - Product use issue [Unknown]
  - Pharyngitis [Unknown]

NARRATIVE: CASE EVENT DATE: 20150406
